FAERS Safety Report 25287534 (Version 3)
Quarter: 2025Q3

REPORT INFORMATION
  Report Type: Spontaneous
  Country: US (occurrence: US)
  Receive Date: 20250509
  Receipt Date: 20250722
  Transmission Date: 20251020
  Serious: Yes (Hospitalization)
  Sender: AUROBINDO
  Company Number: US-AUROBINDO-AUR-APL-2025-022994

PATIENT
  Age: 29 Year
  Sex: Female
  Weight: 81.64 kg

DRUGS (2)
  1. PROGESTERONE [Suspect]
     Active Substance: PROGESTERONE
     Indication: Infertility
     Route: 065
  2. PROGESTERONE [Suspect]
     Active Substance: PROGESTERONE
     Route: 065

REACTIONS (2)
  - Injection site erythema [Not Recovered/Not Resolved]
  - Injection site abscess [Not Recovered/Not Resolved]

NARRATIVE: CASE EVENT DATE: 20250414
